FAERS Safety Report 8688373 (Version 4)
Quarter: 2013Q2

REPORT INFORMATION
  Report Type: Report from Study
  Country: DE (occurrence: DE)
  Receive Date: 20120727
  Receipt Date: 20130412
  Transmission Date: 20140414
  Serious: Yes (Hospitalization)
  Sender: FDA-Public Use
  Company Number: DE-CELGENEUS-062-21880-11051130

PATIENT
  Age: 64 Year
  Sex: Male
  Weight: 72 kg

DRUGS (7)
  1. REVLIMID [Suspect]
     Indication: PLASMA CELL MYELOMA
     Dosage: 25 MILLIGRAM
     Route: 048
     Dates: start: 20100706
  2. REVLIMID [Suspect]
     Dosage: D1-17 OUT OF 28
     Route: 048
     Dates: start: 20100803, end: 20100819
  3. ZOLEDRONATE [Concomitant]
     Indication: BONE LOSS
     Route: 065
  4. DUROGESIC [Concomitant]
     Indication: PRODUCT USED FOR UNKNOWN INDICATION
     Route: 065
  5. LYRICA [Concomitant]
     Indication: PRODUCT USED FOR UNKNOWN INDICATION
     Route: 065
  6. PANTOPRAZOL [Concomitant]
     Indication: PRODUCT USED FOR UNKNOWN INDICATION
     Route: 065
  7. ASPIRINE [Concomitant]
     Indication: PROPHYLAXIS
     Route: 065

REACTIONS (1)
  - B-cell lymphoma stage I [Recovered/Resolved]
